FAERS Safety Report 13443973 (Version 1)
Quarter: 2017Q2

REPORT INFORMATION
  Report Type: Spontaneous
  Country: US (occurrence: US)
  Receive Date: 20170414
  Receipt Date: 20170414
  Transmission Date: 20170830
  Serious: Yes (Other)
  Sender: FDA-Public Use
  Company Number: US-UCBSA-2017014138

PATIENT
  Age: 61 Year
  Sex: Female

DRUGS (9)
  1. DROXIDOPA [Suspect]
     Active Substance: DROXIDOPA
     Indication: PARKINSON^S DISEASE
     Dosage: 100 MG, ONCE DAILY (QD)
     Route: 048
     Dates: start: 20161007, end: 201610
  2. DROXIDOPA [Suspect]
     Active Substance: DROXIDOPA
     Dosage: 100 MG, 3X/DAY (TID)
  3. DROXIDOPA [Suspect]
     Active Substance: DROXIDOPA
     Dosage: 600 MG, 3X/DAY (TID)
  4. DROXIDOPA [Suspect]
     Active Substance: DROXIDOPA
     Dosage: 300 MG, 3X/DAY (TID)
     Route: 048
     Dates: start: 20161022
  5. CARBIDOPA W/LEVODOPA [Concomitant]
     Active Substance: CARBIDOPA\LEVODOPA
     Indication: PARKINSON^S DISEASE
  6. NEUPRO [Suspect]
     Active Substance: ROTIGOTINE
     Indication: PRODUCT USED FOR UNKNOWN INDICATION
     Dosage: UNK
     Route: 062
  7. DROXIDOPA [Suspect]
     Active Substance: DROXIDOPA
     Dosage: 400 MG, 3X/DAY (TID)
     Route: 048
  8. FLUDROCORTISONE [Concomitant]
     Active Substance: FLUDROCORTISONE
     Indication: PRODUCT USED FOR UNKNOWN INDICATION
     Dosage: UNK
  9. AZILECT [Concomitant]
     Active Substance: RASAGILINE MESYLATE
     Indication: PARKINSON^S DISEASE
     Dosage: UNK

REACTIONS (8)
  - Hypotension [Not Recovered/Not Resolved]
  - Somnolence [Unknown]
  - Skin irritation [Unknown]
  - Chills [Not Recovered/Not Resolved]
  - Presyncope [Unknown]
  - Hepatitis C [Unknown]
  - Depression [Unknown]
  - Dizziness [Unknown]

NARRATIVE: CASE EVENT DATE: 2016
